FAERS Safety Report 5795070-2 (Version None)
Quarter: 2008Q2

REPORT INFORMATION
  Report Type: 
  Country: None (occurrence: None)
  Receive Date: 20080630
  Receipt Date: 20080529
  Transmission Date: 20081010
  Serious: No
  Sender: FDA-Public Use
  Company Number: US-BRISTOL-MYERS SQUIBB COMPANY-14129027

PATIENT
  Age: 56 Year
  Sex: Female

DRUGS (7)
  1. ORENCIA [Suspect]
     Indication: RHEUMATOID ARTHRITIS
     Route: 042
     Dates: start: 20080221, end: 20080221
  2. ORENCIA [Suspect]
     Indication: MIXED CONNECTIVE TISSUE DISEASE
     Route: 042
     Dates: start: 20080221, end: 20080221
  3. PREDNISONE [Concomitant]
  4. LEVOXYL [Concomitant]
     Dosage: 1 DOSAGE FORM=0.1(UNITS NOT SPEC)
  5. ARTHROTEC [Concomitant]
     Dosage: 1 DOSAGE FORM=75(UNITS NOT SPEC)
  6. PREVACID [Concomitant]
     Dosage: 1 DOSAGE FORM=30(UNITS NOT SPEC)
  7. HYZAAR [Concomitant]
     Dosage: 1 DOSAGE FORM=12%100(UNITS NOT SPEC)

REACTIONS (1)
  - HYPERSENSITIVITY [None]
